FAERS Safety Report 17514581 (Version 1)
Quarter: 2020Q1

REPORT INFORMATION
  Report Type: Spontaneous
  Country: US (occurrence: US)
  Receive Date: 20200307
  Receipt Date: 20200307
  Transmission Date: 20200409
  Serious: No
  Sender: FDA-Public Use
  Company Number: NVSC2020US064567

PATIENT
  Age: 79 Year
  Sex: Male

DRUGS (3)
  1. BEOVU [Suspect]
     Active Substance: BROLUCIZUMAB-DBLL
     Indication: MACULAR DEGENERATION
     Dosage: 6 MG, QMO
     Route: 050
     Dates: start: 20191114, end: 20200305
  2. BEOVU [Suspect]
     Active Substance: BROLUCIZUMAB-DBLL
     Dosage: 6 UNK
     Route: 050
     Dates: start: 20191212
  3. BEOVU [Suspect]
     Active Substance: BROLUCIZUMAB-DBLL
     Dosage: 6 UNK
     Route: 050
     Dates: start: 20200109

REACTIONS (1)
  - Eye inflammation [Unknown]

NARRATIVE: CASE EVENT DATE: 20200305
